FAERS Safety Report 6409689-9 (Version None)
Quarter: 2009Q4

REPORT INFORMATION
  Report Type: 
  Country: None (occurrence: None)
  Receive Date: 20091022
  Receipt Date: 20091012
  Transmission Date: 20100525
  Serious: Yes (Other)
  Sender: FDA-Public Use
  Company Number: DE-PFIZER INC-2009285318

PATIENT
  Age: 60 Year

DRUGS (3)
  1. HYDROXYZINE HCL [Suspect]
     Dosage: 1025 MG, SINGLE
     Route: 048
  2. TRIMIPRAMINE [Suspect]
     Dosage: 1500 MG, SINGLE
     Route: 048
  3. ZOPICLONE [Suspect]
     Dosage: 75 MG, SINGLE
     Route: 048

REACTIONS (5)
  - BRADYCARDIA [None]
  - COMA [None]
  - MULTIPLE DRUG OVERDOSE [None]
  - SALIVARY HYPERSECRETION [None]
  - SUICIDE ATTEMPT [None]
